FAERS Safety Report 11594861 (Version 1)
Quarter: 2015Q4

REPORT INFORMATION
  Report Type: Spontaneous
  Country: GB (occurrence: GB)
  Receive Date: 20151005
  Receipt Date: 20151005
  Transmission Date: 20160304
  Serious: Yes (Death, Life-Threatening, Hospitalization)
  Sender: FDA-Public Use
  Company Number: GB-ASTRAZENECA-2015SE94855

PATIENT
  Sex: Male
  Weight: 128.5 kg

DRUGS (17)
  1. MAGNESIUM HYDROXIDE. [Concomitant]
     Active Substance: MAGNESIUM HYDROXIDE
  2. OMACOR [Concomitant]
     Active Substance: OMEGA-3-ACID ETHYL ESTERS
  3. METFORMIN [Concomitant]
     Active Substance: METFORMIN HYDROCHLORIDE
  4. AMITRIPTYLINE [Concomitant]
     Active Substance: AMITRIPTYLINE
  5. PAROXETINE [Concomitant]
     Active Substance: PAROXETINE\PAROXETINE HYDROCHLORIDE
  6. METOPROLOL [Concomitant]
     Active Substance: METOPROLOL
  7. LOSEC [Concomitant]
     Active Substance: OMEPRAZOLE
  8. FENOFIBRATE. [Concomitant]
     Active Substance: FENOFIBRATE
  9. DAPAGLIFLOZIN [Suspect]
     Active Substance: DAPAGLIFLOZIN
     Indication: TYPE 2 DIABETES MELLITUS
     Route: 048
     Dates: start: 20140718, end: 20150904
  10. HUMALOG [Concomitant]
     Active Substance: INSULIN LISPRO
  11. PREGABALIN. [Concomitant]
     Active Substance: PREGABALIN
  12. OXYTOCIN. [Concomitant]
     Active Substance: OXYTOCIN
  13. PARACETAMOL [Concomitant]
     Active Substance: ACETAMINOPHEN
  14. LANTUS [Concomitant]
     Active Substance: INSULIN GLARGINE
  15. FLECAINIDE [Concomitant]
     Active Substance: FLECAINIDE
  16. EZETIMIBE. [Concomitant]
     Active Substance: EZETIMIBE
  17. BACLOFEN. [Concomitant]
     Active Substance: BACLOFEN

REACTIONS (3)
  - Confusional state [Unknown]
  - Cardiac arrest [Fatal]
  - Diabetic ketoacidosis [Unknown]

NARRATIVE: CASE EVENT DATE: 20150903
